FAERS Safety Report 8069847-7 (Version None)
Quarter: 2012Q1

REPORT INFORMATION
  Report Type: 
  Country: None (occurrence: None)
  Receive Date: 20120125
  Receipt Date: 20120125
  Transmission Date: 20120608
  Serious: Yes (Death)
  Sender: FDA-Public Use
  Company Number: None

PATIENT
  Age: 78 Year
  Sex: Male
  Weight: 79.378 kg

DRUGS (2)
  1. TRAXODONE [Concomitant]
     Indication: DEPRESSION
     Dosage: 50 DAY SUPPLY
     Dates: start: 20111123, end: 20111201
  2. PAROXETINE HCL [Suspect]
     Indication: DEPRESSION
     Dosage: 30 DAY SUPPLY
     Dates: start: 20111123, end: 20111201

REACTIONS (1)
  - COMPLETED SUICIDE [None]
